FAERS Safety Report 16460031 (Version 2)
Quarter: 2019Q3

REPORT INFORMATION
  Report Type: Spontaneous
  Country: ES (occurrence: ES)
  Receive Date: 20190620
  Receipt Date: 20190731
  Transmission Date: 20191004
  Serious: Yes (Hospitalization, Other)
  Sender: FDA-Public Use
  Company Number: ES-PFIZER INC-2019229343

PATIENT
  Sex: Female

DRUGS (25)
  1. TAXOL [Suspect]
     Active Substance: PACLITAXEL
     Dosage: UNK
     Route: 042
     Dates: start: 20170817, end: 20180314
  2. TAXOL [Suspect]
     Active Substance: PACLITAXEL
     Dosage: UNK
     Dates: start: 20180314
  3. CAELYX [Suspect]
     Active Substance: DOXORUBICIN HYDROCHLORIDE
     Dosage: UNK
     Dates: start: 20180725, end: 20180822
  4. CALCIUM [Concomitant]
     Active Substance: CALCIUM
     Dosage: UNK (1-0-1)
  5. SEGURIL [Concomitant]
     Active Substance: FUROSEMIDE
     Dosage: UNK (1-1-0)
  6. FORTASEC [LOPERAMIDE] [Concomitant]
     Dosage: UNK, 3X/DAY (EVERY 8 HOURS)
  7. ZOMARIST [METFORMIN HYDROCHLORIDE;VILDAGLIPTIN] [Concomitant]
     Dosage: UNK
  8. HIBOR [Concomitant]
     Dosage: 5000 MU, DAILY
     Route: 058
  9. CARBOPLATIN. [Suspect]
     Active Substance: CARBOPLATIN
     Dosage: 316 MG, UNK
     Dates: start: 20180314
  10. MAGNOGENE [MAGNESIUM CHLORIDE] [Concomitant]
     Dosage: 1 DF, 2X/DAY (EVERY 12 HOURS)
  11. PANTOPRAZOLE [Concomitant]
     Active Substance: PANTOPRAZOLE
     Dosage: 1 DF, DAILY (EVERY 24 HOURS)
  12. FERPLEX FOL [Concomitant]
     Dosage: 1 DF, DAILY
  13. CARBOPLATIN. [Suspect]
     Active Substance: CARBOPLATIN
     Dosage: UNK
     Dates: start: 20180725, end: 20180822
  14. TAXOL [Suspect]
     Active Substance: PACLITAXEL
     Dosage: UNK
     Dates: start: 20180131
  15. MAGNOGENE [MAGNESIUM CHLORIDE] [Concomitant]
     Dosage: UNK (1-0-1)
  16. ALDACTONE [Concomitant]
     Active Substance: SPIRONOLACTONE
     Dosage: UNK (2-0-0)
  17. CARBOPLATIN. [Suspect]
     Active Substance: CARBOPLATIN
     Indication: OVARIAN CANCER
     Dosage: UNK
     Route: 042
     Dates: start: 20170817, end: 20180314
  18. CARBOPLATIN. [Suspect]
     Active Substance: CARBOPLATIN
     Dosage: 320 MG, UNK
     Dates: start: 20180822
  19. CAELYX [Suspect]
     Active Substance: DOXORUBICIN HYDROCHLORIDE
     Dosage: UNK
     Dates: start: 20180725
  20. CAELYX [Suspect]
     Active Substance: DOXORUBICIN HYDROCHLORIDE
     Dosage: UNK
     Dates: start: 20180822
  21. CARBOPLATIN. [Suspect]
     Active Substance: CARBOPLATIN
     Dosage: 521 MG, CUMULATIVE DOSE
     Dates: start: 20180131
  22. TAXOL [Suspect]
     Active Substance: PACLITAXEL
     Dosage: UNK
     Dates: start: 20180221
  23. SEGURIL [Concomitant]
     Active Substance: FUROSEMIDE
     Dosage: UNK (40 MG AT BREAKFAST)
  24. CARBOPLATIN. [Suspect]
     Active Substance: CARBOPLATIN
     Dosage: 350 MG, UNK
     Dates: start: 20180221
  25. CARBOPLATIN. [Suspect]
     Active Substance: CARBOPLATIN
     Dosage: 320 MG, UNK
     Dates: start: 20180725

REACTIONS (8)
  - Enterocutaneous fistula [Unknown]
  - Embolism [Unknown]
  - Drug hypersensitivity [Recovering/Resolving]
  - Pruritus [Recovering/Resolving]
  - Asthma [Unknown]
  - Dyspnoea [Unknown]
  - Wound infection [Unknown]
  - Neoplasm progression [Unknown]

NARRATIVE: CASE EVENT DATE: 201710
